FAERS Safety Report 8840658 (Version 1)
Quarter: 2012Q4

REPORT INFORMATION
  Report Type: 
  Country: US (occurrence: US)
  Receive Date: 20121015
  Receipt Date: 20121015
  Transmission Date: 20130627
  Serious: Yes (Other)
  Sender: FDA-Public Use
  Company Number: US-ROCHE-GNE201765

PATIENT
  Age: 51 Year
  Sex: Female

DRUGS (6)
  1. NUTROPIN AQ [Suspect]
     Indication: HYPOPITUITARISM
     Dosage: 2 mg, qd
     Route: 058
     Dates: start: 20030630, end: 200307
  2. NUTROPIN AQ [Suspect]
     Indication: HYPOPITUITARISM
  3. TEGRETOL [Concomitant]
  4. ANDROGEL [Concomitant]
  5. SYNTHROID [Concomitant]
  6. HYDROCORTISONE [Concomitant]

REACTIONS (1)
  - Convulsion [Recovered/Resolved]
